FAERS Safety Report 6180546-9 (Version None)
Quarter: 2009Q2

REPORT INFORMATION
  Report Type: 
  Country: None (occurrence: None)
  Receive Date: 20090504
  Receipt Date: 20090504
  Transmission Date: 20091009
  Serious: Yes (Hospitalization, Disabling)
  Sender: FDA-Public Use
  Company Number: None

PATIENT
  Age: 57 Year
  Sex: Male
  Weight: 90.7194 kg

DRUGS (4)
  1. COPAXONE [Suspect]
     Indication: MULTIPLE SCLEROSIS
     Dosage: 1 DAILY SUBCUTANEOUSLY
     Route: 058
     Dates: start: 20070810
  2. NEXIUM [Concomitant]
  3. ATACAND [Concomitant]
  4. LYRICA [Concomitant]

REACTIONS (5)
  - DIZZINESS [None]
  - FLUSHING [None]
  - IMMEDIATE POST-INJECTION REACTION [None]
  - MYALGIA [None]
  - PAIN [None]
